FAERS Safety Report 13167416 (Version 2)
Quarter: 2017Q3

REPORT INFORMATION
  Report Type: Spontaneous
  Country: US (occurrence: US)
  Receive Date: 20170131
  Receipt Date: 20170802
  Transmission Date: 20171127
  Serious: Yes (Hospitalization, Other)
  Sender: FDA-Public Use
  Company Number: US-PFIZER INC-2017036227

PATIENT
  Age: 69 Year
  Sex: Female
  Weight: 66.22 kg

DRUGS (7)
  1. NEURONTIN [Suspect]
     Active Substance: GABAPENTIN
     Dosage: 5-6 CAPSULES A DAY
  2. NEURONTIN [Suspect]
     Active Substance: GABAPENTIN
     Indication: PARTIAL SEIZURES
     Dosage: NINE 300MG CAPS DAILY
     Route: 048
  3. NEURONTIN [Suspect]
     Active Substance: GABAPENTIN
     Dosage: 4 TO 6  (300 MG CAPS) A DAY
  4. NEURONTIN [Suspect]
     Active Substance: GABAPENTIN
     Dosage: 9 A DAY
     Route: 048
     Dates: start: 20170726
  5. NEURONTIN [Suspect]
     Active Substance: GABAPENTIN
     Dosage: PRESCRIPTION FOR 11 A DAY ONLY TAKING 6-9 TABLETS
  6. NEURONTIN [Suspect]
     Active Substance: GABAPENTIN
     Indication: NEUROPATHY PERIPHERAL
     Dosage: 900 MG, 3X/DAY
  7. NEURONTIN [Suspect]
     Active Substance: GABAPENTIN
     Dosage: 300 MG, UNK (EVERY 1.5 HOURS)
     Route: 048
     Dates: start: 199604

REACTIONS (19)
  - Nerve compression [Unknown]
  - Memory impairment [Unknown]
  - Decreased appetite [Unknown]
  - Prescribed overdose [Unknown]
  - Malaise [Unknown]
  - Intentional product use issue [Recovered/Resolved]
  - Feeling abnormal [Unknown]
  - Systemic lupus erythematosus [Unknown]
  - Intentional product misuse [Recovered/Resolved]
  - Spinal disorder [Unknown]
  - Spinal fracture [Unknown]
  - Pleural effusion [Unknown]
  - Condition aggravated [Recovering/Resolving]
  - Intervertebral disc protrusion [Unknown]
  - Abnormal weight gain [Unknown]
  - Atrial fibrillation [Unknown]
  - Drug dispensing error [Unknown]
  - Gait disturbance [Unknown]
  - Feeling jittery [Recovering/Resolving]

NARRATIVE: CASE EVENT DATE: 199604
